FAERS Safety Report 11068931 (Version 2)
Quarter: 2015Q2

REPORT INFORMATION
  Report Type: Report from Study
  Country: US (occurrence: US)
  Receive Date: 20150427
  Receipt Date: 20150528
  Transmission Date: 20150821
  Serious: Yes (Hospitalization)
  Sender: FDA-Public Use
  Company Number: US-BIOGENIDEC-2015BI053720

PATIENT
  Age: 73 Year
  Sex: Female

DRUGS (1)
  1. PLEGRIDY [Suspect]
     Active Substance: PEGINTERFERON BETA-1A
     Indication: MULTIPLE SCLEROSIS
     Dates: start: 20150310, end: 20150311

REACTIONS (8)
  - General symptom [Not Recovered/Not Resolved]
  - Urinary tract infection [Recovered/Resolved]
  - Muscle spasticity [Recovered/Resolved]
  - Condition aggravated [Not Recovered/Not Resolved]
  - Urinary retention [Recovered/Resolved with Sequelae]
  - Constipation [Recovered/Resolved]
  - Dementia [Not Recovered/Not Resolved]
  - Pyrexia [Recovered/Resolved]

NARRATIVE: CASE EVENT DATE: 20150329
